FAERS Safety Report 24449325 (Version 2)
Quarter: 2024Q4

REPORT INFORMATION
  Report Type: Spontaneous
  Country: IT (occurrence: IT)
  Receive Date: 20241017
  Receipt Date: 20241219
  Transmission Date: 20250115
  Serious: Yes (Hospitalization)
  Sender: RANBAXY
  Company Number: IT-SUN PHARMACEUTICAL INDUSTRIES LTD-2024RR-473261

PATIENT
  Age: 66 Year
  Sex: Male
  Weight: 90 kg

DRUGS (11)
  1. LENALIDOMIDE [Suspect]
     Active Substance: LENALIDOMIDE
     Indication: Plasma cell myeloma
     Dosage: 25 MILLIGRAM, 1DOSE/28DAYS
     Route: 048
     Dates: start: 20240307, end: 20240617
  2. DARZALEX [Suspect]
     Active Substance: DARATUMUMAB
     Indication: Plasma cell myeloma
     Dosage: 1800 MILLIGRAM WEEKLY
     Route: 058
     Dates: start: 20240307, end: 20240701
  3. TOUJEO [Concomitant]
     Active Substance: INSULIN GLARGINE
     Indication: Type 2 diabetes mellitus
     Dosage: 6 INTERNATIONAL UNIT, QD
     Route: 058
  4. DEXAMETHASONE [Concomitant]
     Active Substance: DEXAMETHASONE
     Indication: Adjuvant therapy
     Dosage: 20 MILLIGRAM, WEEKLY
     Route: 048
     Dates: start: 20240510, end: 20240701
  5. DEXAMETHASONE [Concomitant]
     Active Substance: DEXAMETHASONE
     Indication: Adjuvant therapy
     Dosage: WEEKLY, 20 MILLIGRAM
     Route: 040
     Dates: start: 20240307, end: 20240502
  6. APIDRA [Concomitant]
     Active Substance: INSULIN GLULISINE
     Indication: Product used for unknown indication
     Dosage: 100 INTERNATIONAL UNIT
     Route: 065
  7. ACETAMINOPHEN [Concomitant]
     Active Substance: ACETAMINOPHEN
     Indication: Adjuvant therapy
     Dosage: 1 GRAM, WEEKLY
     Route: 048
     Dates: start: 20240307, end: 20240701
  8. CETIRIZINE [Concomitant]
     Active Substance: CETIRIZINE HYDROCHLORIDE
     Indication: Adjuvant therapy
     Dosage: 10 MILLIGRAM WEEKLY
     Route: 048
     Dates: start: 20240510, end: 20240701
  9. ASPIRIN [Concomitant]
     Active Substance: ASPIRIN
     Indication: Product used for unknown indication
     Dosage: 100 MILLIGRAM, QD
     Route: 048
  10. ACICLOVIR ALTER [Concomitant]
     Indication: Product used for unknown indication
     Dosage: 400 MILLIGRAM, BID
     Route: 048
  11. CHLORPHENIRAMINE MALEATE [Concomitant]
     Active Substance: CHLORPHENIRAMINE MALEATE
     Indication: Adjuvant therapy
     Dosage: 10 MILLIGRAM WEEKLY
     Route: 040
     Dates: start: 20240307, end: 20240502

REACTIONS (1)
  - Pneumonia legionella [Recovering/Resolving]

NARRATIVE: CASE EVENT DATE: 20240706
